FAERS Safety Report 9199319 (Version 1)
Quarter: 2013Q1

REPORT INFORMATION
  Report Type: Spontaneous
  Country: US (occurrence: None)
  Receive Date: 20130325
  Receipt Date: 20130325
  Transmission Date: 20140127
  Serious: Yes (Hospitalization)
  Sender: FDA-Public Use
  Company Number: E2080-00484-SPO-US

PATIENT
  Age: 6 Year
  Sex: Male

DRUGS (2)
  1. BANZEL [Suspect]
     Indication: LENNOX-GASTAUT SYNDROME
     Route: 048
     Dates: start: 2011, end: 2011
  2. KEPPRA (LEVETIRACETAM) [Concomitant]

REACTIONS (3)
  - Coordination abnormal [None]
  - Abnormal behaviour [None]
  - Rash [None]
